FAERS Safety Report 11051097 (Version 1)
Quarter: 2015Q2

REPORT INFORMATION
  Report Type: Report from Study
  Country: US (occurrence: US)
  Receive Date: 20150421
  Receipt Date: 20150421
  Transmission Date: 20150821
  Serious: Yes (Other)
  Sender: FDA-Public Use
  Company Number: US-TEVA-540575USA

PATIENT
  Age: 20 Year
  Sex: Male

DRUGS (4)
  1. LODINE [Concomitant]
     Active Substance: ETODOLAC
  2. CLARAVIS [Suspect]
     Active Substance: ISOTRETINOIN
     Route: 048
  3. REMERON [Concomitant]
     Active Substance: MIRTAZAPINE
  4. SUBOXONE [Concomitant]
     Active Substance: BUPRENORPHINE HYDROCHLORIDE\NALOXONE HYDROCHLORIDE

REACTIONS (1)
  - Hepatitis C [Unknown]

NARRATIVE: CASE EVENT DATE: 20150204
